FAERS Safety Report 20542514 (Version 1)
Quarter: 2022Q1

REPORT INFORMATION
  Report Type: Spontaneous
  Country: JP (occurrence: JP)
  Receive Date: 20220302
  Receipt Date: 20220302
  Transmission Date: 20220423
  Serious: Yes (Other)
  Sender: FDA-Public Use
  Company Number: JP-TAKEDA-2021TJP121732

PATIENT
  Age: 80 Year
  Sex: Female
  Weight: 54 kg

DRUGS (1)
  1. ZEJULA [Suspect]
     Active Substance: NIRAPARIB
     Indication: Ovarian cancer recurrent
     Dosage: 200 MILLIGRAM
     Route: 065
     Dates: start: 20210304

REACTIONS (1)
  - Ovarian cancer recurrent [Unknown]
